FAERS Safety Report 6903314-6 (Version None)
Quarter: 2010Q3

REPORT INFORMATION
  Report Type: 
  Country: None (occurrence: None)
  Receive Date: 20100803
  Receipt Date: 20080917
  Transmission Date: 20110219
  Serious: Yes (Other)
  Sender: FDA-Public Use
  Company Number: US-PFIZER INC-2008079215

PATIENT
  Sex: Female
  Weight: 56.7 kg

DRUGS (3)
  1. LYRICA [Suspect]
     Indication: FIBROMYALGIA
     Dates: start: 20070101
  2. CELEXA [Concomitant]
  3. AMBIEN [Concomitant]

REACTIONS (4)
  - HEADACHE [None]
  - MENORRHAGIA [None]
  - OEDEMA PERIPHERAL [None]
  - SWELLING FACE [None]
